FAERS Safety Report 8456306-2 (Version None)
Quarter: 2012Q2

REPORT INFORMATION
  Report Type: 
  Country: None (occurrence: None)
  Receive Date: 20120621
  Receipt Date: 20120611
  Transmission Date: 20120825
  Serious: Yes (Other)
  Sender: FDA-Public Use
  Company Number: FR-ROCHE-1077530

PATIENT
  Age: 48 Year
  Sex: Female

DRUGS (6)
  1. DELURSAN [Concomitant]
     Dates: start: 20070101
  2. FOLIC ACID [Concomitant]
     Dates: start: 20110411
  3. COPEGUS [Suspect]
     Indication: HEPATITIS C
     Dates: start: 20110502, end: 20120402
  4. BOCEPREVIR [Suspect]
     Indication: HEPATITIS C
     Dates: start: 20110530, end: 20120402
  5. PEGASYS [Suspect]
     Indication: HEPATITIS C
     Dates: start: 20110502, end: 20120402
  6. BETASELEN [Concomitant]
     Dates: start: 20070101

REACTIONS (1)
  - PORPHYRIA NON-ACUTE [None]
